FAERS Safety Report 6553879-1 (Version None)
Quarter: 2010Q1

REPORT INFORMATION
  Report Type: 
  Country: None (occurrence: None)
  Receive Date: 20100127
  Receipt Date: 20100121
  Transmission Date: 20100710
  Serious: Yes (Hospitalization)
  Sender: FDA-Public Use
  Company Number: US-ROCHE-677261

PATIENT
  Sex: Female

DRUGS (16)
  1. TRASTUZUMAB [Suspect]
     Dosage: FREQUENCY: EVERY CYCLE. FORM : SOLUTION FOR INFUSION
     Route: 042
     Dates: start: 20080325, end: 20080325
  2. TRASTUZUMAB [Suspect]
     Dosage: FREQUENCY: EVERY CYCLE. FORM : SOLUTION FOR INFUSION. THERAPY DURATION: 1 DAY.
     Route: 042
     Dates: start: 20080506
  3. BEVACIZUMAB [Suspect]
     Route: 042
     Dates: start: 20080325, end: 20080325
  4. BEVACIZUMAB [Suspect]
     Dosage: FORM: SOLUTION FOR INFUSION. FREQUENCY: EVERY CYCLE.
     Route: 042
     Dates: start: 20080415
  5. CARBOPLATIN [Suspect]
     Dosage: FORM: SOLUTION FOR INFUSION. FREQUENCY: EVERY CYCLE.
     Route: 042
     Dates: start: 20080325, end: 20080325
  6. CARBOPLATIN [Suspect]
     Dosage: FORM: SOLUTION FOR INFUSION. FREQUENCY: EVERY CYCLE.
     Route: 042
     Dates: start: 20080506
  7. DOCETAXEL [Suspect]
     Indication: BREAST CANCER
     Dosage: FORM: CONCENTRATE SOLUTION FOR INFUSION. FREQUENCY: EVERY CYCLE. TIME TO ONSET: 6.6 WEEK
     Route: 042
     Dates: start: 20080325, end: 20080325
  8. DOCETAXEL [Suspect]
     Dosage: FORM: SOLUTION FOR INFUSION. FREQUENCY: EVERY CYCLE.
     Route: 042
     Dates: start: 20080506
  9. PROCHLORPERAZINE [Concomitant]
  10. DEXAMETHASONE [Concomitant]
  11. PRILOCAINE HYDROCHLORIDE [Concomitant]
  12. ACETAMINOPHEN [Concomitant]
  13. MORPHINE [Concomitant]
  14. NYSTATIN [Concomitant]
  15. ALUMINIUM HYDROXIDE GEL [Concomitant]
  16. MOUTHWASH NOS [Concomitant]
     Dosage: DRUG NAME: RONS RUM.  (ANAESTHETIC MOUTHWASH)

REACTIONS (1)
  - OESOPHAGITIS ULCERATIVE [None]
